FAERS Safety Report 5933271-0 (Version None)
Quarter: 2008Q4

REPORT INFORMATION
  Report Type: 
  Country: None (occurrence: None)
  Receive Date: 20081028
  Receipt Date: 20081022
  Transmission Date: 20090506
  Serious: No
  Sender: FDA-Public Use
  Company Number: US-B.I. PHARMACEUTICALS,INC./RIDGEFIELD-2008-BP-16183BP

PATIENT
  Sex: Male

DRUGS (2)
  1. FLOMAX [Suspect]
     Indication: MICTURITION URGENCY
     Dosage: .4MG
     Route: 048
     Dates: start: 20080701, end: 20080701
  2. CRESTOR [Concomitant]

REACTIONS (2)
  - CONTUSION [None]
  - SYNCOPE [None]
